FAERS Safety Report 12771834 (Version 1)
Quarter: 2016Q3

REPORT INFORMATION
  Report Type: Spontaneous
  Country: AR (occurrence: AR)
  Receive Date: 20160922
  Receipt Date: 20160922
  Transmission Date: 20161109
  Serious: Yes (Other)
  Sender: FDA-Public Use
  Company Number: AR-PFIZER INC-2015050343

PATIENT
  Age: 76 Year
  Sex: Female

DRUGS (2)
  1. SUTENT [Suspect]
     Active Substance: SUNITINIB MALATE
     Indication: ABDOMINAL NEOPLASM
     Dosage: 37.5 MG, CYCLIC (ONCE DAILY, 4 WEEKS OF TREATMENT (28 DAYS) AND 2 WEEKS OF REST (14 DAYS)
     Dates: start: 20131201, end: 201606
  2. SUTENT [Suspect]
     Active Substance: SUNITINIB MALATE
     Dosage: 37.5 MG, CYCLIC (ONCE DAILY, 4 WEEKS OF TREATMENT (28 DAYS) AND 2 WEEKS OF REST (14 DAYS)
     Dates: start: 20131201, end: 201606

REACTIONS (8)
  - Headache [Recovering/Resolving]
  - Oropharyngeal pain [Unknown]
  - Second primary malignancy [Not Recovered/Not Resolved]
  - Blood pressure increased [Recovering/Resolving]
  - Abdominal neoplasm [Unknown]
  - Pharyngeal neoplasm [Not Recovered/Not Resolved]
  - Pharyngeal ulceration [Unknown]
  - Disease progression [Unknown]
